FAERS Safety Report 21679442 (Version 4)
Quarter: 2023Q1

REPORT INFORMATION
  Report Type: Other
  Country: US (occurrence: US)
  Receive Date: 20221205
  Receipt Date: 20230315
  Transmission Date: 20230418
  Serious: Yes (Death)
  Sender: FDA-Public Use
  Company Number: US-TOLMAR, INC.-22US037738

PATIENT
  Age: 78 Year
  Sex: Male
  Weight: 79.73 kg

DRUGS (17)
  1. ELIGARD [Suspect]
     Active Substance: LEUPROLIDE ACETATE
     Indication: Prostate cancer
     Dosage: 22.5 MILLIGRAM, Q 3 MONTH
     Route: 058
     Dates: start: 20161222, end: 20220922
  2. ENZALUTAMIDE [Suspect]
     Active Substance: ENZALUTAMIDE
     Indication: Prostate cancer
     Dosage: UNK, QD
     Route: 048
     Dates: start: 20161222, end: 20221119
  3. PANTOPRAZOLE [Concomitant]
     Active Substance: PANTOPRAZOLE
     Indication: Dyspepsia
     Dosage: UNK
     Dates: start: 2015
  4. VITAMIN B1 [Concomitant]
     Active Substance: THIAMINE HYDROCHLORIDE
     Indication: Nutritional supplementation
     Dosage: UNK
     Dates: start: 2014
  5. ALLOPURINOL [Concomitant]
     Active Substance: ALLOPURINOL
     Indication: Gout
     Dosage: UNK
     Dates: start: 2013
  6. IRON [Concomitant]
     Active Substance: IRON
     Indication: Nutritional supplementation
     Dosage: UNK
     Dates: start: 2015
  7. METOPROLOL SUCCINATE [Concomitant]
     Active Substance: METOPROLOL SUCCINATE
     Indication: Hypertension
     Dosage: UNK
     Dates: start: 20170717
  8. INSULIN ASPART [Concomitant]
     Active Substance: INSULIN ASPART
     Indication: Diabetes mellitus
     Dosage: UNK
     Dates: start: 20180402
  9. ROSUVASTATIN [Concomitant]
     Active Substance: ROSUVASTATIN
     Indication: Hypercholesterolaemia
     Dosage: UNK
     Dates: start: 20190219
  10. EZETIMIBE [Concomitant]
     Active Substance: EZETIMIBE
     Indication: Hypercholesterolaemia
     Dosage: UNK
     Dates: start: 20210528
  11. TRULICITY [Concomitant]
     Active Substance: DULAGLUTIDE
     Indication: Diabetes mellitus
     Dosage: UNK
     Dates: start: 20210517
  12. INSULIN DEGLUDEC [Concomitant]
     Active Substance: INSULIN DEGLUDEC
     Indication: Diabetes mellitus
     Dosage: UNK
     Dates: start: 20220106
  13. FARXIGA [Concomitant]
     Active Substance: DAPAGLIFLOZIN PROPANEDIOL
     Indication: Diabetes mellitus
     Dosage: UNK
     Dates: start: 20220207
  14. ENTRESTO [Concomitant]
     Active Substance: SACUBITRIL\VALSARTAN
     Indication: Atrial fibrillation
     Dosage: UNK
     Dates: start: 20220207
  15. FUROSEMIDE [Concomitant]
     Active Substance: FUROSEMIDE
     Indication: Fluid retention
     Dosage: UNK
     Dates: start: 20220207
  16. MINERALS\VITAMINS [Concomitant]
     Active Substance: MINERALS\VITAMINS
     Indication: Nutritional supplementation
     Dosage: UNK
     Dates: start: 20220721
  17. CALTRATE [Concomitant]
     Active Substance: CALCIUM CARBONATE
     Indication: Nutritional supplementation
     Dosage: UNK
     Dates: start: 20180604

REACTIONS (1)
  - Pneumonia [Fatal]

NARRATIVE: CASE EVENT DATE: 20221116
